FAERS Safety Report 21676522 (Version 1)
Quarter: 2022Q4

REPORT INFORMATION
  Report Type: Spontaneous
  Country: PT (occurrence: PT)
  Receive Date: 20221202
  Receipt Date: 20221202
  Transmission Date: 20230113
  Serious: Yes (Other)
  Sender: FDA-Public Use
  Company Number: PT-GILEAD-2022-0607259

PATIENT
  Age: 47 Year
  Sex: Male

DRUGS (3)
  1. TRUVADA [Suspect]
     Active Substance: EMTRICITABINE\TENOFOVIR DISOPROXIL FUMARATE
     Indication: Prophylaxis against HIV infection
     Dosage: UNK
     Route: 065
     Dates: start: 2018, end: 2019
  2. BIKTARVY [Suspect]
     Active Substance: BICTEGRAVIR SODIUM\EMTRICITABINE\TENOFOVIR ALAFENAMIDE FUMARATE
     Indication: HIV test positive
     Dosage: UNK
     Route: 065
     Dates: start: 202104
  3. DOLUTEGRAVIR [Concomitant]
     Active Substance: DOLUTEGRAVIR
     Indication: HIV test positive
     Dosage: UNK
     Dates: start: 2020

REACTIONS (23)
  - Suicidal ideation [Unknown]
  - Major depression [Unknown]
  - Erectile dysfunction [Unknown]
  - Gonorrhoea [Unknown]
  - Drug ineffective [Unknown]
  - Pyrexia [Unknown]
  - Odynophagia [Unknown]
  - Abdominal distension [Unknown]
  - Intervertebral disc protrusion [Unknown]
  - Paraesthesia [Unknown]
  - Apathy [Unknown]
  - Insomnia [Unknown]
  - Morbid thoughts [Unknown]
  - Anhedonia [Unknown]
  - Dysania [Unknown]
  - Nervous system disorder [Unknown]
  - Depressed mood [Unknown]
  - Depressive symptom [Unknown]
  - Anxiety [Unknown]
  - Sexual dysfunction [Unknown]
  - Anorgasmia [Unknown]
  - Neisseria test positive [Unknown]
  - Depressed mood [Unknown]

NARRATIVE: CASE EVENT DATE: 20190101
